FAERS Safety Report 11205279 (Version 1)
Quarter: 2015Q2

REPORT INFORMATION
  Report Type: Spontaneous
  Country: PT (occurrence: PT)
  Receive Date: 20150622
  Receipt Date: 20150622
  Transmission Date: 20150821
  Serious: Yes (Other)
  Sender: FDA-Public Use
  Company Number: PT-ACTAVIS-2015-12099

PATIENT
  Age: 50 Year
  Sex: Female
  Weight: 83 kg

DRUGS (3)
  1. DEXAMETASONA                       /00016001/ [Concomitant]
     Indication: PROPHYLAXIS OF NAUSEA AND VOMITING
     Dosage: 1 DF, 1/ THREE WEEKS; PREMEDICATION
     Route: 042
     Dates: start: 20150504
  2. DOCETAXEL ACTAVIS [Suspect]
     Active Substance: DOCETAXEL
     Indication: BREAST CANCER
     Dosage: 190 MG, 1/ THREE WEEKS
     Route: 042
     Dates: start: 20150504
  3. ONDANSETROM                        /00955301/ [Concomitant]
     Indication: PROPHYLAXIS OF NAUSEA AND VOMITING
     Dosage: 1 DF, 1/ THREE WEEKS; PREMEDICATION
     Route: 042
     Dates: start: 20150504

REACTIONS (3)
  - Administration site hypersensitivity [Recovering/Resolving]
  - Administration site erythema [Recovering/Resolving]
  - Injection site discolouration [Recovering/Resolving]

NARRATIVE: CASE EVENT DATE: 20150508
